FAERS Safety Report 21239483 (Version 1)
Quarter: 2022Q3

REPORT INFORMATION
  Report Type: Report from Study
  Country: US (occurrence: US)
  Receive Date: 20220822
  Receipt Date: 20220822
  Transmission Date: 20221027
  Serious: Yes (Other)
  Sender: FDA-Public Use
  Company Number: US-TAKEDA-2022TUS056988

PATIENT
  Sex: Female
  Weight: 86.168 kg

DRUGS (30)
  1. HUMAN IMMUNOGLOBULIN G [Suspect]
     Active Substance: HUMAN IMMUNOGLOBULIN G
     Indication: Idiopathic urticaria
     Dosage: 40 GRAM, 1/WEEK
     Route: 042
     Dates: start: 20220131
  2. BENADRYL [Suspect]
     Active Substance: DIPHENHYDRAMINE HYDROCHLORIDE
     Indication: Product used for unknown indication
     Dosage: UNK
     Route: 065
  3. DIPHENHYDRAMINE [Concomitant]
     Active Substance: DIPHENHYDRAMINE
  4. ACETAMINOPHEN [Concomitant]
     Active Substance: ACETAMINOPHEN
  5. SODIUM CHLORIDE [Concomitant]
     Active Substance: SODIUM CHLORIDE
  6. EPINEPHRINE [Concomitant]
     Active Substance: EPINEPHRINE
  7. NALTREXONE HYDROCHLORIDE [Concomitant]
     Active Substance: NALTREXONE HYDROCHLORIDE
  8. DILTIAZEM [Concomitant]
     Active Substance: DILTIAZEM
  9. PREDNISONE [Concomitant]
     Active Substance: PREDNISONE
  10. AMITRIPTYLINE [Concomitant]
     Active Substance: AMITRIPTYLINE
  11. ESTRADIOL [Concomitant]
     Active Substance: ESTRADIOL
  12. LORATADINE [Concomitant]
     Active Substance: LORATADINE
  13. METHYLPHENIDATE HYDROCHLORIDE [Concomitant]
     Active Substance: METHYLPHENIDATE HYDROCHLORIDE
  14. FLUDROCORTISONE ACETATE [Concomitant]
     Active Substance: FLUDROCORTISONE ACETATE
  15. PYRIDOSTIGMINE BROMIDE [Concomitant]
     Active Substance: PYRIDOSTIGMINE BROMIDE
  16. NORTRIPTYLINE HYDROCHLORIDE [Concomitant]
     Active Substance: NORTRIPTYLINE HYDROCHLORIDE
  17. CIMETIDINE [Concomitant]
     Active Substance: CIMETIDINE
  18. SODIUM CHLORIDE [Concomitant]
     Active Substance: SODIUM CHLORIDE
  19. BETAMETHASONE DIPROPIONATE, AUGMENTED [Concomitant]
  20. LYSTEDA [Concomitant]
     Active Substance: TRANEXAMIC ACID
  21. CROMOLYN SODIUM [Concomitant]
     Active Substance: CROMOLYN SODIUM
  22. PRASTERONE [Concomitant]
     Active Substance: PRASTERONE
  23. ALBUTEROL SULFATE [Concomitant]
     Active Substance: ALBUTEROL SULFATE
  24. HEPARIN [Concomitant]
     Active Substance: HEPARIN SODIUM
  25. FLUCONAZOLE [Concomitant]
     Active Substance: FLUCONAZOLE
  26. LIDOCAINE [Concomitant]
     Active Substance: LIDOCAINE
  27. METFORMIN HYDROCHLORIDE [Concomitant]
     Active Substance: METFORMIN HYDROCHLORIDE
  28. SYMBICORT [Concomitant]
     Active Substance: BUDESONIDE\FORMOTEROL FUMARATE DIHYDRATE
     Indication: Idiopathic urticaria
     Dosage: 40 GRAM, 1/WEEK
     Route: 042
     Dates: start: 20220131
  29. MONTELUKAST SODIUM [Concomitant]
     Active Substance: MONTELUKAST SODIUM
  30. PROGESTERONE [Concomitant]
     Active Substance: PROGESTERONE

REACTIONS (5)
  - Hallucination [Unknown]
  - Fungal infection [Unknown]
  - Palpitations [Unknown]
  - Reaction to flavouring [Unknown]
  - Off label use [Unknown]
